FAERS Safety Report 13071063 (Version 5)
Quarter: 2017Q1

REPORT INFORMATION
  Report Type: Spontaneous
  Country: BE (occurrence: BE)
  Receive Date: 20161229
  Receipt Date: 20170227
  Transmission Date: 20170428
  Serious: Yes (Life-Threatening, Hospitalization, Other)
  Sender: FDA-Public Use
  Company Number: BE-TAKEDA-2016MPI011032

PATIENT
  Age: 70 Year
  Sex: Female
  Weight: 65 kg

DRUGS (52)
  1. VELCADE [Suspect]
     Active Substance: BORTEZOMIB
     Dosage: 2.15 MG, UNK
     Route: 058
     Dates: start: 20160530, end: 20161114
  2. PREDNISONE. [Suspect]
     Active Substance: PREDNISONE
     Indication: PLASMA CELL MYELOMA
     Dosage: 80 MG, UNK
     Route: 048
     Dates: start: 20160307, end: 20161006
  3. MELPHALAN [Suspect]
     Active Substance: MELPHALAN
     Dosage: 14 MG, UNK
     Route: 048
     Dates: start: 20161004, end: 20161004
  4. DEXAMETHASONE. [Concomitant]
     Active Substance: DEXAMETHASONE
     Indication: PLASMA CELL MYELOMA
     Dosage: 20 MG, QD
     Route: 048
     Dates: start: 20160229, end: 20160303
  5. VELCADE [Suspect]
     Active Substance: BORTEZOMIB
     Dosage: UNK
     Route: 058
     Dates: end: 20161212
  6. MELPHALAN [Suspect]
     Active Substance: MELPHALAN
     Dosage: 14 MG, UNK
     Route: 048
     Dates: start: 20160712, end: 20160712
  7. COAPROVEL [Concomitant]
     Active Substance: HYDROCHLOROTHIAZIDE\IRBESARTAN
     Dosage: 300 MG, QD
     Route: 048
     Dates: start: 20160530
  8. MELPHALAN [Suspect]
     Active Substance: MELPHALAN
     Dosage: 16 MG, UNK
     Route: 048
     Dates: start: 20160713, end: 20160713
  9. MELPHALAN [Suspect]
     Active Substance: MELPHALAN
     Dosage: 14 MG, UNK
     Route: 048
     Dates: start: 20160823, end: 20160823
  10. MELPHALAN [Suspect]
     Active Substance: MELPHALAN
     Dosage: 14 MG, UNK
     Route: 048
     Dates: start: 20160825, end: 20160825
  11. MELPHALAN [Suspect]
     Active Substance: MELPHALAN
     Dosage: 16 MG, UNK
     Route: 048
     Dates: start: 20161005, end: 20161005
  12. MELPHALAN [Suspect]
     Active Substance: MELPHALAN
     Dosage: UNK
     Route: 048
     Dates: end: 20161017
  13. SELECTOL [Concomitant]
     Active Substance: CELIPROLOL
     Indication: HYPERTENSION
     Dosage: 200 MG, QD
     Route: 048
     Dates: start: 1996, end: 20160417
  14. COAPROVEL [Concomitant]
     Active Substance: HYDROCHLOROTHIAZIDE\IRBESARTAN
     Indication: HYPERTENSION
     Dosage: 300 MG, QD
     Route: 048
     Dates: start: 1996, end: 20160524
  15. OXYNORM [Concomitant]
     Active Substance: OXYCODONE HYDROCHLORIDE
     Indication: BONE PAIN
     Dosage: 5 MG, UNK
     Route: 048
     Dates: start: 20160411
  16. LYSANXIA [Concomitant]
     Active Substance: PRAZEPAM
     Indication: ANXIETY
     Dosage: UNK
     Route: 048
     Dates: start: 20160307
  17. VELCADE [Suspect]
     Active Substance: BORTEZOMIB
     Indication: PLASMA CELL MYELOMA
     Dosage: 2.16 MG, UNK
     Route: 058
     Dates: start: 20160307, end: 20160509
  18. MELPHALAN [Suspect]
     Active Substance: MELPHALAN
     Dosage: 14 MG, UNK
     Route: 048
     Dates: start: 20160310, end: 20160310
  19. MELPHALAN [Suspect]
     Active Substance: MELPHALAN
     Dosage: 16 MG, UNK
     Route: 048
     Dates: start: 20160601, end: 20160601
  20. MELPHALAN [Suspect]
     Active Substance: MELPHALAN
     Dosage: 16 MG, UNK
     Route: 048
     Dates: start: 20160822, end: 20160822
  21. MELPHALAN [Suspect]
     Active Substance: MELPHALAN
     Dosage: 14 MG, UNK
     Route: 048
     Dates: start: 20161006, end: 20161006
  22. ESCITALOPRAM [Concomitant]
     Active Substance: ESCITALOPRAM OXALATE
     Indication: DEPRESSION
     Dosage: 10 MG, QD
     Route: 048
     Dates: start: 20151015
  23. D-CURE [Concomitant]
     Indication: OSTEOPOROSIS PROPHYLAXIS
     Dosage: 625 MG, UNK
     Route: 048
     Dates: start: 20160222
  24. DAFALGAN [Concomitant]
     Active Substance: ACETAMINOPHEN
     Indication: BONE PAIN
     Dosage: 2000 MG, UNK
     Route: 048
     Dates: start: 20160523
  25. ZOMETA [Concomitant]
     Active Substance: ZOLEDRONIC ACID
     Indication: PROPHYLAXIS
     Dosage: 4 MG, QD
     Route: 042
     Dates: start: 20161121, end: 20161121
  26. MELPHALAN [Suspect]
     Active Substance: MELPHALAN
     Dosage: 16 MG, UNK
     Route: 048
     Dates: start: 20160530, end: 20160530
  27. MELPHALAN [Suspect]
     Active Substance: MELPHALAN
     Dosage: 16 MG, UNK
     Route: 048
     Dates: start: 20161003, end: 20161003
  28. MEDROL [Suspect]
     Active Substance: METHYLPREDNISOLONE
     Indication: PLASMA CELL MYELOMA
     Dosage: UNK
     Route: 048
     Dates: start: 20160307, end: 20161117
  29. PARACETAMOL [Concomitant]
     Active Substance: ACETAMINOPHEN
     Indication: BONE PAIN
     Dosage: 1 G, UNK
     Route: 048
     Dates: start: 20160408
  30. MONURIL [Concomitant]
     Active Substance: FOSFOMYCIN SODIUM
     Indication: PROPHYLAXIS
     Dosage: 3 G, UNK
     Route: 048
     Dates: start: 20160317
  31. MELPHALAN [Suspect]
     Active Substance: MELPHALAN
     Indication: PLASMA CELL MYELOMA
     Dosage: 16 MG, UNK
     Route: 048
     Dates: start: 20160307, end: 20160307
  32. MELPHALAN [Suspect]
     Active Substance: MELPHALAN
     Dosage: 14 MG, UNK
     Route: 048
     Dates: start: 20160308, end: 20160308
  33. MELPHALAN [Suspect]
     Active Substance: MELPHALAN
     Dosage: 16 MG, UNK
     Route: 048
     Dates: start: 20160309, end: 20160309
  34. MELPHALAN [Suspect]
     Active Substance: MELPHALAN
     Dosage: 16 MG, UNK
     Route: 048
     Dates: start: 20160711, end: 20160711
  35. MELPHALAN [Suspect]
     Active Substance: MELPHALAN
     Dosage: 14 MG, UNK
     Route: 048
     Dates: start: 20160714, end: 20160714
  36. MELPHALAN [Suspect]
     Active Substance: MELPHALAN
     Dosage: 16 MG, UNK
     Route: 048
     Dates: start: 20160824, end: 20160824
  37. SELECTOL [Concomitant]
     Active Substance: CELIPROLOL
     Dosage: 400 MG, QD
     Route: 048
     Dates: start: 20160418
  38. L THYROXINE [Concomitant]
     Active Substance: LEVOTHYROXINE SODIUM
     Indication: HYPOTHYROIDISM
     Dosage: 75 ?G, QD
     Route: 048
     Dates: start: 1996
  39. TRAMADOL RETARD [Concomitant]
     Active Substance: TRAMADOL
     Indication: BONE PAIN
     Dosage: 150 MG, UNK
     Route: 048
     Dates: start: 20160222, end: 20160523
  40. BUDESONIDE. [Concomitant]
     Active Substance: BUDESONIDE
     Indication: BRONCHIAL HYPERREACTIVITY
     Dosage: 200 MG, BID
     Route: 055
     Dates: start: 201510, end: 20160530
  41. ACICLOVIR [Concomitant]
     Active Substance: ACYCLOVIR
     Indication: ANTIVIRAL PROPHYLAXIS
     Dosage: 400 MG, TID
     Route: 048
     Dates: start: 20160307
  42. MELPHALAN [Suspect]
     Active Substance: MELPHALAN
     Dosage: 15 MG, UNK
     Route: 048
     Dates: start: 20160418, end: 20160421
  43. METHOTREXATE (METHOTREXATE SODIUM) [Concomitant]
     Active Substance: METHOTREXATE SODIUM
     Indication: POLYARTHRITIS
     Dosage: 15 MG, 1/WEEK
     Route: 030
     Dates: start: 2004
  44. FOLIC ACID. [Concomitant]
     Active Substance: FOLIC ACID
     Indication: POLYARTHRITIS
     Dosage: 10 MG, 1/WEEK
     Route: 048
     Dates: start: 2004
  45. CALCIUM [Concomitant]
     Active Substance: CALCIUM
     Indication: OSTEOPOROSIS PROPHYLAXIS
     Dosage: 500 MG, QD
     Route: 048
     Dates: start: 20160222
  46. LORMETAZEPAM [Concomitant]
     Active Substance: LORMETAZEPAM
     Indication: SLEEP DISORDER
     Dosage: 1 MG, UNK
     Route: 048
     Dates: start: 20160222
  47. OMEPRAZOLE. [Concomitant]
     Active Substance: OMEPRAZOLE
     Indication: GASTROINTESTINAL DISORDER THERAPY
     Dosage: 20 MG, QD
     Route: 048
     Dates: start: 20160225
  48. OXYCONTIN [Concomitant]
     Active Substance: OXYCODONE HYDROCHLORIDE
     Indication: BONE PAIN
     Dosage: 20 MG, BID
     Route: 048
     Dates: start: 20160822
  49. MELPHALAN [Suspect]
     Active Substance: MELPHALAN
     Dosage: 14 MG, UNK
     Route: 048
     Dates: start: 20160531, end: 20160701
  50. MELPHALAN [Suspect]
     Active Substance: MELPHALAN
     Dosage: 14 MG, UNK
     Route: 048
     Dates: start: 20160602, end: 20160602
  51. OXYCONTIN [Concomitant]
     Active Substance: OXYCODONE HYDROCHLORIDE
     Dosage: 15 MG, BID
     Route: 048
     Dates: start: 20160523, end: 20160821
  52. MOVICOL [Concomitant]
     Active Substance: POLYETHYLENE GLYCOL 3350\POTASSIUM CHLORIDE\SODIUM BICARBONATE\SODIUM CHLORIDE
     Indication: CONSTIPATION
     Dosage: UNK
     Route: 048
     Dates: start: 20160523, end: 20160530

REACTIONS (9)
  - Tracheitis [Unknown]
  - Meningitis pneumococcal [Unknown]
  - Arthritis [Unknown]
  - Constipation [Unknown]
  - Encephalitis [Unknown]
  - Renal failure [Unknown]
  - Anxiety [Unknown]
  - Sepsis [Recovered/Resolved]
  - Anaemia [Unknown]

NARRATIVE: CASE EVENT DATE: 20160307
